FAERS Safety Report 7988162-0 (Version None)
Quarter: 2011Q4

REPORT INFORMATION
  Report Type: 
  Country: None (occurrence: None)
  Receive Date: 20111216
  Receipt Date: 20101208
  Transmission Date: 20120403
  Serious: No
  Sender: FDA-Public Use
  Company Number: US-BRISTOL-MYERS SQUIBB COMPANY-15430697

PATIENT
  Age: 6 Year

DRUGS (1)
  1. ABILIFY [Suspect]
     Route: 048

REACTIONS (3)
  - VOMITING [None]
  - SOMNOLENCE [None]
  - NAUSEA [None]
